FAERS Safety Report 8030446-4 (Version None)
Quarter: 2012Q1

REPORT INFORMATION
  Report Type: 
  Country: None (occurrence: None)
  Receive Date: 20120109
  Receipt Date: 20120105
  Transmission Date: 20120608
  Serious: Yes (Other)
  Sender: FDA-Public Use
  Company Number: PHHY2012JP001068

PATIENT
  Age: 75 Year
  Sex: Male
  Weight: 68 kg

DRUGS (5)
  1. NORVASC [Concomitant]
     Dosage: UNK UKN, UNK
     Route: 048
  2. THEOLONG [Concomitant]
     Dosage: UNK UKN, UNK
     Route: 048
  3. FLUTICASONE PROPIONATE [Concomitant]
     Dosage: UNK UKN, UNK
  4. LASIX [Concomitant]
     Dosage: UNK UKN, UNK
     Route: 048
  5. ZOMETA [Suspect]
     Indication: METASTASES TO BONE
     Dosage: 4 MG, UNK
     Route: 042
     Dates: start: 20090101, end: 20101101

REACTIONS (2)
  - OSTEONECROSIS OF JAW [None]
  - TOOTH INFECTION [None]
